FAERS Safety Report 8726583 (Version 2)
Quarter: 2012Q4

REPORT INFORMATION
  Report Type: Spontaneous
  Country: SE (occurrence: None)
  Receive Date: 20120730
  Receipt Date: 20120831
  Transmission Date: 20130627
  Serious: Yes (Hospitalization)
  Sender: FDA-Public Use
  Company Number: 2012175774

PATIENT
  Age: 72 Year
  Sex: Male

DRUGS (1)
  1. FRAGMIN [Suspect]
     Dosage: 5000 IU, FREQUENCY UNKNOWN
     Route: 015
     Dates: start: 20120713

REACTIONS (1)
  - ANGINA PECTORIS [None]
